FAERS Safety Report 4437095-5 (Version None)
Quarter: 2004Q3

REPORT INFORMATION
  Report Type: 
  Country: None (occurrence: None)
  Receive Date: 20040827
  Receipt Date: 20040812
  Transmission Date: 20050211
  Serious: Yes (Hospitalization)
  Sender: FDA-Public Use
  Company Number: 04P-163-0270439-00

PATIENT
  Sex: Female

DRUGS (8)
  1. HUMIRA [Suspect]
     Indication: RHEUMATOID ARTHRITIS
     Dosage: 40 MG, 1 IN 2 WK, SUBCUTANEOUS
     Route: 058
     Dates: start: 20040301, end: 20040701
  2. ALENDRONATE SODIUM [Concomitant]
  3. LEVOTHYROXINE SODIUM [Concomitant]
  4. PROGESTERONE [Concomitant]
  5. CENESDIN [Concomitant]
  6. METHOTREXATE SODIUM [Concomitant]
  7. HYDROXYCHLOROQUINE PHOSPHATE [Concomitant]
  8. ROFECOXIB [Concomitant]

REACTIONS (2)
  - INFECTION [None]
  - LEUKAEMIA [None]
